FAERS Safety Report 9922760 (Version 2)
Quarter: 2014Q1

REPORT INFORMATION
  Report Type: Spontaneous
  Country: CH (occurrence: CH)
  Receive Date: 20140225
  Receipt Date: 20140311
  Transmission Date: 20141002
  Serious: Yes (Life-Threatening)
  Sender: FDA-Public Use
  Company Number: CH-ACTAVIS-2014-03244

PATIENT
  Age: 50 Year
  Sex: Male
  Weight: 95 kg

DRUGS (6)
  1. ANTABUS [Suspect]
     Indication: ALCOHOL ABUSE
     Dosage: 400 MG, 3/WEEK
     Route: 048
     Dates: end: 20140119
  2. SORTIS [Suspect]
     Indication: HYPERCHOLESTEROLAEMIA
     Dosage: 40 MG, DAILY
     Route: 048
     Dates: end: 20140119
  3. GALVUMET [Suspect]
     Indication: TYPE 2 DIABETES MELLITUS
     Dosage: 1 DF, DAILY
     Route: 048
     Dates: end: 20140119
  4. BRUFEN /00109201/ [Suspect]
     Indication: PRODUCT USED FOR UNKNOWN INDICATION
     Dosage: 600 MG, DAILY
     Route: 048
  5. PANTOZOL                           /01263204/ [Concomitant]
     Indication: PRODUCT USED FOR UNKNOWN INDICATION
     Dosage: 20 MG, DAILY
     Route: 048
     Dates: end: 20140119
  6. EXFORGE [Concomitant]
     Indication: PRODUCT USED FOR UNKNOWN INDICATION
     Dosage: 1 DF, DAILY
     Route: 048
     Dates: end: 20140119

REACTIONS (4)
  - Metabolic acidosis [Not Recovered/Not Resolved]
  - Rhabdomyolysis [Not Recovered/Not Resolved]
  - Renal failure acute [Not Recovered/Not Resolved]
  - Blood potassium increased [Not Recovered/Not Resolved]
